FAERS Safety Report 6166599-2 (Version None)
Quarter: 2009Q2

REPORT INFORMATION
  Report Type: 
  Country: None (occurrence: None)
  Receive Date: 20090424
  Receipt Date: 20080422
  Transmission Date: 20091009
  Serious: No
  Sender: FDA-Public Use
  Company Number: US-ASTRAZENECA-2008UW08248

PATIENT
  Age: 30 Year
  Sex: Female

DRUGS (2)
  1. ZOMIG [Suspect]
     Route: 048
  2. ORAL STEROID [Concomitant]

REACTIONS (2)
  - BURNING SENSATION [None]
  - CONFUSIONAL STATE [None]
